FAERS Safety Report 5205973-5 (Version None)
Quarter: 2007Q1

REPORT INFORMATION
  Report Type: 
  Country: None (occurrence: None)
  Receive Date: 20070111
  Receipt Date: 20070105
  Transmission Date: 20070707
  Serious: Yes (Other)
  Sender: FDA-Public Use
  Company Number: FR-JNJFOC-20060401418

PATIENT
  Sex: Female

DRUGS (5)
  1. HALDOL [Suspect]
     Indication: DRUG USE FOR UNKNOWN INDICATION
     Dosage: DURATION OF SEVERAL MONTHS
     Route: 030
  2. CHLORPROMAZINE [Concomitant]
  3. CITALOPRAM HYDROBROMIDE [Concomitant]
  4. TRANXENE [Concomitant]
  5. ZOPICLONE [Concomitant]
     Indication: INSOMNIA

REACTIONS (2)
  - ABORTION SPONTANEOUS [None]
  - DRUG EXPOSURE DURING PREGNANCY [None]
